FAERS Safety Report 8106345-6 (Version None)
Quarter: 2012Q1

REPORT INFORMATION
  Report Type: 
  Country: None (occurrence: None)
  Receive Date: 20120130
  Receipt Date: 20120114
  Transmission Date: 20120608
  Serious: Yes (Hospitalization)
  Sender: FDA-Public Use
  Company Number: CIO11022681

PATIENT
  Age: 62 Year
  Sex: Male

DRUGS (12)
  1. PRO-HEALTH INVIGORATING CLEAN MULTI-PROTECTION ORAL RINSE, INVIG MINT [Suspect]
     Dosage: 1 APPLIC, 2/DAY FOR 2 DAYS, INTRAORAL
     Dates: start: 20111201, end: 20111202
  2. NALOPRIL (ENALAPRIL MALEATE) [Concomitant]
  3. CLONAZEPAM [Concomitant]
  4. PAXIL [Concomitant]
  5. METOCLOPRAMIDE [Concomitant]
  6. ASPIRIN [Concomitant]
  7. NAMENDA [Concomitant]
  8. PROVIGIL [Concomitant]
  9. BUPROBAN (BUPROPION HYDROCHLORIDE) [Concomitant]
  10. NIACIN [Concomitant]
  11. GABAPENTIN [Concomitant]
  12. OMEPRAZOLE [Concomitant]

REACTIONS (7)
  - GINGIVAL BLISTER [None]
  - MOUTH ULCERATION [None]
  - LIP SWELLING [None]
  - CHEMICAL BURN OF GASTROINTESTINAL TRACT [None]
  - STOMATITIS [None]
  - SWOLLEN TONGUE [None]
  - PRODUCT QUALITY ISSUE [None]
